FAERS Safety Report 5168820-6 (Version None)
Quarter: 2006Q4

REPORT INFORMATION
  Report Type: 
  Country: None (occurrence: None)
  Receive Date: 20061205
  Receipt Date: 20061205
  Transmission Date: 20070319
  Serious: Yes (Death)
  Sender: FDA-Public Use
  Company Number: None

PATIENT
  Age: 28 Year
  Sex: Male
  Weight: 127.0072 kg

DRUGS (1)
  1. METHADONE HCL [Suspect]
     Indication: HEADACHE
     Dosage: 10 MG  3 TIMES PER DAY  PO
     Route: 048
     Dates: start: 20061002, end: 20061006

REACTIONS (1)
  - OVERDOSE [None]
